FAERS Safety Report 9787920 (Version 5)
Quarter: 2014Q2

REPORT INFORMATION
  Report Type: Report from Study
  Country: FR (occurrence: FR)
  Receive Date: 20131230
  Receipt Date: 20140625
  Transmission Date: 20141212
  Serious: Yes (Hospitalization)
  Sender: FDA-Public Use
  Company Number: FR-ROCHE-1311143

PATIENT
  Age: 45 Year
  Sex: Male
  Weight: 67 kg

DRUGS (13)
  1. VEMURAFENIB [Suspect]
     Indication: MALIGNANT MELANOMA
     Route: 048
     Dates: start: 20130902, end: 20131118
  2. VEMURAFENIB [Suspect]
     Route: 048
     Dates: start: 20131126, end: 20131206
  3. LOVENOX [Concomitant]
     Indication: LYMPHOEDEMA
     Route: 058
     Dates: start: 20130825
  4. SOLUPRED (FRANCE) [Concomitant]
     Indication: LYMPHOEDEMA
     Route: 048
     Dates: start: 20130812, end: 20140101
  5. PARACETAMOL [Concomitant]
     Indication: PAIN IN EXTREMITY
     Route: 048
     Dates: start: 20130812
  6. LYRICA [Concomitant]
     Indication: PAIN IN EXTREMITY
     Route: 048
     Dates: start: 20130812
  7. OXYCONTIN [Concomitant]
     Indication: PAIN IN EXTREMITY
     Route: 048
     Dates: start: 20130830, end: 20131208
  8. OXYNORM [Concomitant]
     Indication: PAIN IN EXTREMITY
     Route: 048
     Dates: start: 20130830, end: 20131208
  9. DUPHALAC [Concomitant]
     Indication: CONSTIPATION PROPHYLAXIS
     Route: 048
     Dates: start: 201308
  10. INEXIUM [Concomitant]
     Indication: PROPHYLAXIS
     Route: 048
     Dates: start: 20130830, end: 20131205
  11. MUPIDERM [Concomitant]
     Indication: FOLLICULITIS
     Route: 061
     Dates: start: 20131020
  12. COBIMETINIB [Suspect]
     Indication: MALIGNANT MELANOMA
     Route: 048
     Dates: start: 20130902, end: 20131117
  13. COBIMETINIB [Suspect]
     Route: 048
     Dates: start: 20131126, end: 20131206

REACTIONS (2)
  - Gastroenteritis [Recovered/Resolved]
  - Hyponatraemia [Not Recovered/Not Resolved]
